FAERS Safety Report 23010978 (Version 7)
Quarter: 2024Q4

REPORT INFORMATION
  Report Type: Report from Study
  Country: CA (occurrence: CA)
  Receive Date: 20230929
  Receipt Date: 20241120
  Transmission Date: 20250115
  Serious: No
  Sender: ROCHE
  Company Number: CA-ROCHE-3359422

PATIENT
  Sex: Female

DRUGS (10)
  1. OCREVUS [Suspect]
     Active Substance: OCRELIZUMAB
     Indication: Relapsing-remitting multiple sclerosis
     Dosage: 300 MG AT DAY 0 AND 14, THEN 600 MG EVERY 6 MONTH, CONCENTRATE FOR INTRAVENOUS INFUSION
     Route: 042
     Dates: start: 20230520
  2. GABAPENTIN [Suspect]
     Active Substance: GABAPENTIN
     Indication: Product used for unknown indication
     Route: 065
  3. FUROSEMIDE [Concomitant]
     Active Substance: FUROSEMIDE
     Dosage: 20MG WATER RETENTION AND HIGH BLOOD?PRESSURE?1*1 PER DAY
  4. CYCLOBENZAPRINE [Concomitant]
     Active Substance: CYCLOBENZAPRINE
     Dosage: 1 CAPSULE TWICE PER DAY SPASMS AND MUSCLE RELAXERS
  5. PERINDOPRIL [Concomitant]
     Active Substance: PERINDOPRIL
     Dosage: 8 MG HIGH BLOOD PRESSURE?1 CAPSULE 1 TIME PER DAY
  6. PANTOPRAZOLE [Concomitant]
     Active Substance: PANTOPRAZOLE
     Dosage: 40MG STOMACH?1 CAPSULE 1 TIME PER DAY
  7. AMLODIPINE [Concomitant]
     Active Substance: AMLODIPINE BESYLATE
     Dosage: 5MG HIGH BLOOD PRESSURE MAY CAUSE SWELLING IN LEGS AND ARMS?1 CAPSULE ONE TIME PER DAY
  8. GABAPENTIN [Concomitant]
     Active Substance: GABAPENTIN
     Dosage: 1 CAPSULE EACH 8 HOURS 300MG?STARTING MAY 21ST?WAS BEFORE INJECTION?GABAPENTIN 300 MG?2 CAPSULES 2 T
  9. FUROSEMIDE [Concomitant]
     Active Substance: FUROSEMIDE
     Route: 065
  10. CHOLECALCIFEROL [Concomitant]
     Active Substance: CHOLECALCIFEROL
     Dosage: 10000 U
     Route: 065

REACTIONS (11)
  - Back pain [Not Recovered/Not Resolved]
  - Pain in extremity [Not Recovered/Not Resolved]
  - Hypoaesthesia [Recovered/Resolved with Sequelae]
  - Fluid retention [Not Recovered/Not Resolved]
  - Oral herpes [Recovered/Resolved]
  - Diarrhoea [Recovered/Resolved]
  - Muscle spasms [Not Recovered/Not Resolved]
  - Haemorrhage [Unknown]
  - Dizziness [Unknown]
  - Peripheral swelling [Unknown]
  - Muscle tightness [Not Recovered/Not Resolved]
